FAERS Safety Report 5048793-7 (Version None)
Quarter: 2006Q3

REPORT INFORMATION
  Report Type: 
  Country: None (occurrence: None)
  Receive Date: 20060705
  Receipt Date: 20060614
  Transmission Date: 20061208
  Serious: Yes (Death)
  Sender: FDA-Public Use
  Company Number: CN200606003480

PATIENT
  Age: 70 Year
  Sex: Female

DRUGS (2)
  1. GEMZAR [Suspect]
     Indication: NON-SMALL CELL LUNG CANCER
     Dosage: 1.4 G, (DAYS 1, 8, Q3W), INTRAVENOUS
     Route: 042
     Dates: start: 20040801, end: 20041001
  2. CARBOPLATIN [Concomitant]

REACTIONS (2)
  - LUNG INFECTION [None]
  - MALIGNANT NEOPLASM PROGRESSION [None]
